FAERS Safety Report 21671132 (Version 4)
Quarter: 2023Q1

REPORT INFORMATION
  Report Type: Report from Study
  Country: FR (occurrence: FR)
  Receive Date: 20221202
  Receipt Date: 20230217
  Transmission Date: 20230417
  Serious: Yes (Other)
  Sender: FDA-Public Use
  Company Number: FR-002147023-NVSC2022FR276456

PATIENT
  Sex: Male
  Weight: 72 kg

DRUGS (5)
  1. PLUVICTO [Suspect]
     Active Substance: LUTETIUM LU-177 VIPIVOTIDE TETRAXETAN
     Indication: Prostate cancer
     Dosage: 7052 MBQ, ONCE (CYCLE 1)
     Route: 065
     Dates: start: 20220705, end: 20220705
  2. PLUVICTO [Suspect]
     Active Substance: LUTETIUM LU-177 VIPIVOTIDE TETRAXETAN
     Dosage: 7085 MBQ, ONCE (CYCLE 2)
     Route: 065
     Dates: start: 20220818, end: 20220818
  3. PLUVICTO [Suspect]
     Active Substance: LUTETIUM LU-177 VIPIVOTIDE TETRAXETAN
     Dosage: 7113 MBQ, ONCE (CYCLE 3)
     Route: 065
     Dates: start: 20220926, end: 20220926
  4. PLUVICTO [Suspect]
     Active Substance: LUTETIUM LU-177 VIPIVOTIDE TETRAXETAN
     Dosage: 7245 MBQ, ONCE (CYCLE 4)
     Route: 065
     Dates: start: 20221107, end: 20221107
  5. ELIGARD [Concomitant]
     Active Substance: LEUPROLIDE ACETATE
     Indication: Product used for unknown indication
     Dosage: UNK (EVERY 6 MOTHS)
     Route: 065

REACTIONS (2)
  - Lipase increased [Unknown]
  - Amylase increased [Unknown]

NARRATIVE: CASE EVENT DATE: 20221101
